FAERS Safety Report 8000173-8 (Version None)
Quarter: 2011Q4

REPORT INFORMATION
  Report Type: 
  Country: None (occurrence: None)
  Receive Date: 20111220
  Receipt Date: 20111220
  Transmission Date: 20120403
  Serious: Yes (Hospitalization)
  Sender: FDA-Public Use
  Company Number: None

PATIENT
  Sex: Female
  Weight: 56.4 kg

DRUGS (2)
  1. TAXOL [Suspect]
     Dosage: 387 MG
     Dates: end: 20110130
  2. CARBOPLATIN [Suspect]
     Dosage: 577 MG
     Dates: end: 20111116

REACTIONS (8)
  - HIATUS HERNIA [None]
  - GASTRITIS [None]
  - GASTROOESOPHAGEAL REFLUX DISEASE [None]
  - ABDOMINAL PAIN UPPER [None]
  - OESOPHAGEAL SPASM [None]
  - LEUKOPENIA [None]
  - OESOPHAGEAL CANDIDIASIS [None]
  - NEUTROPENIA [None]
